FAERS Safety Report 10466706 (Version 1)
Quarter: 2014Q3

REPORT INFORMATION
  Report Type: Spontaneous
  Country: US (occurrence: None)
  Receive Date: 20140919
  Receipt Date: 20140919
  Transmission Date: 20150326
  Serious: Yes (Hospitalization)
  Sender: FDA-Public Use
  Company Number: None

PATIENT
  Age: 68 Year
  Sex: Male
  Weight: 85.6 kg

DRUGS (2)
  1. PREGABALIN. [Suspect]
     Active Substance: PREGABALIN
     Indication: CONVULSION
     Route: 048
     Dates: start: 20130506, end: 20140829
  2. LACOSAMIDE [Suspect]
     Active Substance: LACOSAMIDE
     Indication: CONVULSION
     Route: 048
     Dates: start: 20130506, end: 20140829

REACTIONS (5)
  - Cerebrovascular accident [None]
  - Leukocytosis [None]
  - Gait disturbance [None]
  - Renal failure acute [None]
  - Renal function test abnormal [None]

NARRATIVE: CASE EVENT DATE: 20140829
